FAERS Safety Report 19153264 (Version 1)
Quarter: 2021Q2

REPORT INFORMATION
  Report Type: Spontaneous
  Country: US (occurrence: US)
  Receive Date: 20210419
  Receipt Date: 20210419
  Transmission Date: 20210717
  Serious: No
  Sender: FDA-Public Use
  Company Number: US-CADILA HEALTHCARE LIMITED-US-ZYDUS-048838

PATIENT

DRUGS (1)
  1. OSELTAMIVIR PHOSPHATE 75 MILLIGRAM CAPSULE [Suspect]
     Active Substance: OSELTAMIVIR PHOSPHATE
     Indication: INFLUENZA
     Dosage: 75 MG TWICE DAILY
     Route: 048

REACTIONS (14)
  - Pruritus [Unknown]
  - Mood swings [Unknown]
  - Back pain [Unknown]
  - Blepharospasm [Unknown]
  - Confusional state [Unknown]
  - Delusion [Unknown]
  - Feeling abnormal [Unknown]
  - Tinnitus [Unknown]
  - Hallucination [Unknown]
  - Insomnia [Unknown]
  - Headache [Unknown]
  - Anxiety [Unknown]
  - Muscle spasms [Unknown]
  - Pain in jaw [Unknown]
